FAERS Safety Report 24579823 (Version 1)
Quarter: 2024Q4

REPORT INFORMATION
  Report Type: Report from Study
  Country: JP (occurrence: JP)
  Receive Date: 20241105
  Receipt Date: 20241105
  Transmission Date: 20250115
  Serious: Yes (Death)
  Sender: ROCHE
  Company Number: JP-ROCHE-10000123302

PATIENT

DRUGS (5)
  1. RITUXAN [Suspect]
     Active Substance: RITUXIMAB
     Indication: Castleman^s disease
     Route: 050
  2. RITUXAN [Suspect]
     Active Substance: RITUXIMAB
     Indication: Castleman^s disease
  3. TOCILIZUMAB [Suspect]
     Active Substance: TOCILIZUMAB
     Indication: Castleman^s disease
     Route: 065
  4. PREDNISOLONE [Suspect]
     Active Substance: PREDNISOLONE
     Indication: Castleman^s disease
     Route: 065
  5. CYCLOSPORINE [Suspect]
     Active Substance: CYCLOSPORINE
     Indication: Castleman^s disease
     Route: 065

REACTIONS (4)
  - Respiratory failure [Fatal]
  - Pleural effusion [Fatal]
  - Cytomegalovirus infection [Fatal]
  - Off label use [Fatal]
